FAERS Safety Report 5796954-1 (Version None)
Quarter: 2008Q2

REPORT INFORMATION
  Report Type: 
  Country: None (occurrence: None)
  Receive Date: 20080618
  Receipt Date: 20070510
  Transmission Date: 20081010
  Serious: Yes (Other)
  Sender: FDA-Public Use
  Company Number: 200712229US

PATIENT
  Age: 69 Year
  Sex: Female

DRUGS (16)
  1. LANTUS [Suspect]
     Indication: BLOOD GLUCOSE INCREASED
     Dosage: 20 U QD; A FEW YEARS
  2. OPTICLIK [Suspect]
     Indication: BLOOD GLUCOSE INCREASED
  3. STEROIDS ORAL [Suspect]
     Dosage: PO
     Route: 048
  4. IRON [Concomitant]
  5. BYETTA [Concomitant]
  6. METFORMIN, GLIBENCLAMIDE (GLUCOVANCE /01503701/) [Concomitant]
  7. POTASSIUM CHLORIDE [Concomitant]
  8. ATORVASTATIN CALCIUM (LIPTOR) [Concomitant]
  9. DILTIAZEM (CARDIZEM /00489701/) [Concomitant]
  10. METOPROLOL SUCCINATE [Concomitant]
  11. OMEPRAZOLE (PRILOSEC /00661201/) [Concomitant]
  12. INDAPAMIDE [Concomitant]
  13. ALLERGY MEDICATION [Concomitant]
  14. CALCIUM [Concomitant]
  15. ASCORBIC ACID, TOCOPHERYL ACETATE, RETINOL, ZINC, CALCIUM, VITAMINS NO [Concomitant]
  16. ACETYLSALICYLIC ACID SRT [Concomitant]

REACTIONS (2)
  - BLOOD GLUCOSE DECREASED [None]
  - BLOOD GLUCOSE INCREASED [None]
